FAERS Safety Report 11165303 (Version 10)
Quarter: 2016Q3

REPORT INFORMATION
  Report Type: Report from Study
  Country: CA (occurrence: CA)
  Receive Date: 20150604
  Receipt Date: 20160828
  Transmission Date: 20161109
  Serious: Yes (Hospitalization, Other)
  Sender: FDA-Public Use
  Company Number: PHHY2015CA066525

PATIENT
  Age: 68 Year
  Sex: Female

DRUGS (5)
  1. SANDOSTATIN [Suspect]
     Active Substance: OCTREOTIDE ACETATE
     Indication: OVARIAN CANCER RECURRENT
     Dosage: 100 UG (MCG), TID
     Route: 058
     Dates: start: 20140701, end: 201412
  2. SANDOSTATIN LAR DEPOT [Suspect]
     Active Substance: OCTREOTIDE ACETATE
     Dosage: 30 MG, QMO (EVERY 4 WEEKS)
     Route: 030
  3. SANDOSTATIN [Suspect]
     Active Substance: OCTREOTIDE ACETATE
     Dosage: UNK
     Route: 058
     Dates: start: 201503
  4. SANDOSTATIN LAR DEPOT [Suspect]
     Active Substance: OCTREOTIDE ACETATE
     Indication: OVARIAN CANCER RECURRENT
     Dosage: 20 MG, QMO (EVERY 4 WEEKS)
     Route: 030
     Dates: start: 20150604
  5. SANDOSTATIN [Suspect]
     Active Substance: OCTREOTIDE ACETATE
     Dosage: 100 UNK, UNK
     Route: 058
     Dates: start: 20150701

REACTIONS (8)
  - Malignant neoplasm progression [Unknown]
  - Confusional state [Unknown]
  - Vomiting [Unknown]
  - Functional gastrointestinal disorder [Unknown]
  - Blood pressure increased [Unknown]
  - Metastases to gastrointestinal tract [Unknown]
  - Blood pressure systolic increased [Unknown]
  - Product use issue [Unknown]

NARRATIVE: CASE EVENT DATE: 201502
